FAERS Safety Report 19243118 (Version 1)
Quarter: 2021Q2

REPORT INFORMATION
  Report Type: Spontaneous
  Country: US (occurrence: US)
  Receive Date: 20210511
  Receipt Date: 20210511
  Transmission Date: 20210717
  Serious: Yes (Other)
  Sender: FDA-Public Use
  Company Number: US-GLAXOSMITHKLINE-USCH2021GSK024015

PATIENT
  Age: 63 Year
  Sex: Female

DRUGS (1)
  1. IBUPROFEN. [Suspect]
     Active Substance: IBUPROFEN
     Indication: ARTHRALGIA
     Dosage: 400 MG AS NEEDED

REACTIONS (10)
  - Abdominal pain lower [Unknown]
  - Colitis [Unknown]
  - Gastrointestinal disorder [Unknown]
  - Mucosal hypertrophy [Unknown]
  - Excessive granulation tissue [Unknown]
  - Intestinal fibrosis [Unknown]
  - Intestinal mass [Unknown]
  - Nausea [Unknown]
  - Vomiting [Unknown]
  - Large intestinal ulcer [Recovered/Resolved]
